FAERS Safety Report 11599098 (Version 1)
Quarter: 2015Q4

REPORT INFORMATION
  Report Type: Spontaneous
  Country: US (occurrence: US)
  Receive Date: 20151006
  Receipt Date: 20151006
  Transmission Date: 20160304
  Serious: No
  Sender: FDA-Public Use
  Company Number: US-CELGENEUS-USA-2015097268

PATIENT
  Sex: Female
  Weight: 73.55 kg

DRUGS (4)
  1. THALOMID [Suspect]
     Active Substance: THALIDOMIDE
     Route: 048
     Dates: start: 20141113
  2. THALOMID [Suspect]
     Active Substance: THALIDOMIDE
     Indication: MYELOFIBROSIS
     Route: 048
     Dates: start: 201406
  3. THALOMID [Suspect]
     Active Substance: THALIDOMIDE
     Dosage: 100-200 MG
     Route: 048
     Dates: start: 201408
  4. THALOMID [Suspect]
     Active Substance: THALIDOMIDE
     Route: 048
     Dates: start: 201503

REACTIONS (4)
  - Lacrimation increased [Unknown]
  - Hypoacusis [Unknown]
  - Hyposmia [Unknown]
  - Ageusia [Unknown]
